FAERS Safety Report 8106188-3 (Version None)
Quarter: 2012Q1

REPORT INFORMATION
  Report Type: 
  Country: None (occurrence: None)
  Receive Date: 20120202
  Receipt Date: 20120125
  Transmission Date: 20120608
  Serious: Yes (Other)
  Sender: FDA-Public Use
  Company Number: JP-VERTEX PHARMACEUTICALS INC.-AE-2012-001521

PATIENT
  Age: 55 Year
  Sex: Male

DRUGS (3)
  1. PEG-INTRON [Concomitant]
     Route: 058
     Dates: start: 20120111
  2. REBETOL [Concomitant]
     Route: 048
     Dates: start: 20120111
  3. TELAVIC (TELAPREVIR) [Suspect]
     Route: 048
     Dates: start: 20120111

REACTIONS (3)
  - NEUTROPHIL COUNT DECREASED [None]
  - PLATELET COUNT DECREASED [None]
  - ERYTHEMA [None]
